FAERS Safety Report 7962989-3 (Version None)
Quarter: 2011Q4

REPORT INFORMATION
  Report Type: 
  Country: None (occurrence: None)
  Receive Date: 20111207
  Receipt Date: 20111128
  Transmission Date: 20120403
  Serious: Yes (Other)
  Sender: FDA-Public Use
  Company Number: US-ASTRAZENECA-2011SE61560

PATIENT
  Age: 91 Year
  Sex: Female

DRUGS (14)
  1. FLUOCINONIDE [Concomitant]
     Dosage: 0.05% APPLY TO SKIN TWICE A DAY AS NEEDED
     Route: 061
  2. LEVOTHYROXINE SODIUM [Concomitant]
     Route: 048
  3. ALPRAZOLAM [Concomitant]
     Route: 048
  4. VESICARE [Concomitant]
     Route: 048
  5. SIMVASTATIN [Concomitant]
     Route: 048
  6. OMEPRAZOLE [Concomitant]
     Route: 048
  7. ALBUTEROL SULFATE [Concomitant]
     Dosage: 2.5MG/0.5ML 1 INHALE EVERY 4 HOURS AS NEEDED.
     Route: 055
  8. SYMBICORT [Suspect]
     Dosage: 160/4.5MCG 2 PUFFS BID
     Route: 055
  9. ALPRAZOLAM [Concomitant]
     Route: 048
     Dates: start: 20111004
  10. LISINOPRIL [Concomitant]
     Route: 048
  11. OMEGA 3 FATTY ACIDS [Concomitant]
     Route: 048
  12. FERROUS SULFATE TAB [Concomitant]
     Dosage: 325MG (65MG IRON) TWO TIMES DAILY
     Route: 048
  13. LISINOPRIL [Concomitant]
     Route: 048
  14. ZITHROMAX [Concomitant]
     Route: 048

REACTIONS (1)
  - BLINDNESS UNILATERAL [None]
